FAERS Safety Report 12715392 (Version 2)
Quarter: 2016Q3

REPORT INFORMATION
  Report Type: Spontaneous
  Country: BR (occurrence: BR)
  Receive Date: 20160906
  Receipt Date: 20160923
  Transmission Date: 20161109
  Serious: Yes (Hospitalization, Other)
  Sender: FDA-Public Use
  Company Number: BR-BRISTOL-MYERS SQUIBB COMPANY-BMS-2016-072660

PATIENT
  Age: 85 Year
  Sex: Female
  Weight: 53 kg

DRUGS (4)
  1. ELIQUIS [Suspect]
     Active Substance: APIXABAN
     Indication: THROMBOSIS PROPHYLAXIS
     Dosage: 2 TAB, DAILY
     Route: 048
     Dates: start: 2013
  2. ALDACTONE [Concomitant]
     Active Substance: SPIRONOLACTONE
     Indication: POLYURIA
     Dosage: UNK, QD
     Route: 048
     Dates: start: 201408
  3. LASIX [Concomitant]
     Active Substance: FUROSEMIDE
     Indication: POLYURIA
     Dosage: UNK UNK, QD
     Route: 048
     Dates: start: 201408
  4. CONCOR [Concomitant]
     Active Substance: BISOPROLOL FUMARATE
     Indication: POLYURIA
     Dosage: UNK, QD
     Route: 048
     Dates: start: 201408

REACTIONS (12)
  - Lung disorder [Recovered/Resolved]
  - Coagulopathy [Unknown]
  - Diarrhoea [Recovered/Resolved]
  - Pulmonary haemorrhage [Recovered/Resolved]
  - Malaise [Unknown]
  - White blood cell count decreased [Unknown]
  - General physical health deterioration [Unknown]
  - Gastric disorder [Not Recovered/Not Resolved]
  - Epistaxis [Unknown]
  - Bronchitis [Recovered/Resolved]
  - Red blood cell count decreased [Unknown]
  - Anaemia [Not Recovered/Not Resolved]

NARRATIVE: CASE EVENT DATE: 2013
